FAERS Safety Report 21242281 (Version 2)
Quarter: 2022Q3

REPORT INFORMATION
  Report Type: Spontaneous
  Country: BA (occurrence: BA)
  Receive Date: 20220823
  Receipt Date: 20220907
  Transmission Date: 20221027
  Serious: Yes (Death, Hospitalization, Other)
  Sender: FDA-Public Use
  Company Number: BA-BAXTER-2022BAX017768

PATIENT
  Sex: Male

DRUGS (1)
  1. CALCIUM CL\DEXTROSE\MAGNESIUM CL\SODIUM BICAR\SODIUM CL\SODIUM LACT [Suspect]
     Active Substance: CALCIUM CL\DEXTROSE\MAGNESIUM CL\SODIUM BICAR\SODIUM CL\SODIUM LACT
     Indication: Peritoneal dialysis
     Dosage: 2 L
     Route: 033

REACTIONS (9)
  - Abdominal infection [Fatal]
  - Escherichia peritonitis [Fatal]
  - Ileus paralytic [Fatal]
  - Cardiopulmonary failure [Fatal]
  - Anaemia [Fatal]
  - Hyperparathyroidism secondary [Fatal]
  - Myofascial pain syndrome [Fatal]
  - Arteriosclerosis [Fatal]
  - Hypertension [Fatal]
